FAERS Safety Report 21584086 (Version 2)
Quarter: 2023Q1

REPORT INFORMATION
  Report Type: Spontaneous
  Country: CA (occurrence: CA)
  Receive Date: 20221111
  Receipt Date: 20230125
  Transmission Date: 20230418
  Serious: Yes (Other)
  Sender: FDA-Public Use
  Company Number: CA-PFIZER INC-202201286760

PATIENT
  Age: 50 Year
  Sex: Female

DRUGS (2)
  1. ABRILADA [Suspect]
     Active Substance: ADALIMUMAB-AFZB
     Indication: Crohn^s disease
     Dosage: 160 MG WEEK 0, 80MG WEEKS 2 THEN 40MG EVERY 2 WEEKS
     Route: 058
     Dates: start: 20221026
  2. ABRILADA [Suspect]
     Active Substance: ADALIMUMAB-AFZB
     Dosage: 160 MG WEEK 0, 80MG WEEKS 2 THEN 40MG EVERY 2 WEEKS
     Route: 058
     Dates: start: 20221026

REACTIONS (4)
  - Carpal tunnel syndrome [Recovered/Resolved]
  - Drug ineffective [Unknown]
  - Arthritis [Unknown]
  - Arthralgia [Not Recovered/Not Resolved]
